FAERS Safety Report 13045840 (Version 1)
Quarter: 2016Q4

REPORT INFORMATION
  Report Type: Spontaneous
  Country: JP (occurrence: JP)
  Receive Date: 20161220
  Receipt Date: 20161220
  Transmission Date: 20170207
  Serious: Yes (Other)
  Sender: FDA-Public Use
  Company Number: JP-ELI_LILLY_AND_COMPANY-JP201612001035

PATIENT
  Age: 49 Year
  Sex: Female

DRUGS (11)
  1. AKINETON [Concomitant]
     Active Substance: BIPERIDEN HYDROCHLORIDE
  2. LUNESTA [Concomitant]
     Active Substance: ESZOPICLONE
  3. QUETIAPINE. [Suspect]
     Active Substance: QUETIAPINE
     Indication: PRODUCT USED FOR UNKNOWN INDICATION
     Dosage: UNK
     Route: 048
  4. OLANZAPIN [Concomitant]
     Active Substance: OLANZAPINE
     Indication: PRODUCT USED FOR UNKNOWN INDICATION
     Dosage: UNK, 20MG
     Route: 048
     Dates: end: 201611
  5. BENZALIN                           /00036201/ [Concomitant]
     Active Substance: NITRAZEPAM
  6. POLAPREZINC [Concomitant]
     Active Substance: POLAPREZINC
  7. ZYPREXA [Suspect]
     Active Substance: OLANZAPINE
     Indication: SCHIZOPHRENIA
     Dosage: 20 MG, QD
     Route: 048
     Dates: start: 201611
  8. MECOBALAMIN [Concomitant]
     Active Substance: METHYLCOBALAMIN
  9. VALERIN                            /00228502/ [Concomitant]
     Active Substance: VALPROATE SODIUM
  10. ZYPREXA [Suspect]
     Active Substance: OLANZAPINE
     Indication: SCHIZOPHRENIA
     Dosage: UNK
     Route: 030
     Dates: start: 20161126, end: 20161128
  11. ABILIFY [Suspect]
     Active Substance: ARIPIPRAZOLE
     Indication: SCHIZOPHRENIA
     Dosage: UNK
     Route: 048
     Dates: start: 20161121

REACTIONS (3)
  - Blood creatine phosphokinase increased [Unknown]
  - Haemorrhage subcutaneous [Unknown]
  - Blood creatine phosphokinase increased [Recovered/Resolved]

NARRATIVE: CASE EVENT DATE: 20161129
